FAERS Safety Report 10912896 (Version 1)
Quarter: 2015Q1

REPORT INFORMATION
  Report Type: Spontaneous
  Country: US (occurrence: None)
  Receive Date: 20150310
  Receipt Date: 20150310
  Transmission Date: 20150721
  Serious: Yes (Hospitalization)
  Sender: FDA-Public Use
  Company Number: None

PATIENT
  Age: 59 Year
  Sex: Male
  Weight: 110.22 kg

DRUGS (22)
  1. DEXLANSOPRAZOLE (DEXILANT) [Concomitant]
  2. OMEGA-3 FATTY ACIDS (FISH OIL) [Concomitant]
  3. ONDANSETRON HCL (ZOFRAN PO) [Concomitant]
  4. POLYETHYLENE GLYCOL 3350 (MIRALAX PO) [Concomitant]
  5. L-METHYLFOLATE-B6-B12 (METANX) [Concomitant]
  6. PEMBROLIZUMAB. [Suspect]
     Active Substance: PEMBROLIZUMAB
     Indication: ADENOCARCINOMA
     Route: 042
     Dates: start: 20150206, end: 20150309
  7. DULOXETINE HCL (CYMBALTA) [Concomitant]
  8. L-GLUTAMINE /00503401/ [Concomitant]
     Active Substance: GLUTAMINE
  9. OXYCODONE-ACETAMINOPHEN (PERCOCET) [Concomitant]
  10. PROBIOTIC PRODUCT (SOLUBLE FIBER/PROBIOTIC PO) [Concomitant]
  11. FAMOTIDINE (PEPCID) [Concomitant]
  12. MAGNESIUM CHLORIDE (MAG64 OR) [Concomitant]
  13. BUDESONIDE (PULMICORT) [Concomitant]
  14. COENZYME Q10 (CO Q-10) [Concomitant]
  15. PRAVASTATIN SODIUM (PRAVACHOL) [Concomitant]
  16. WARFARIN SODIUM (COUMADIN OR) [Concomitant]
  17. ALBUTEROL. [Concomitant]
     Active Substance: ALBUTEROL
  18. REMERON [Concomitant]
     Active Substance: MIRTAZAPINE
  19. XANAX [Concomitant]
     Active Substance: ALPRAZOLAM
  20. ASPIRIN. [Concomitant]
     Active Substance: ASPIRIN
  21. DENOSUMAB (XGEVA) [Concomitant]
  22. MULTIPLE VITAMIN (DAILY MULTIVITAMIN OR) [Concomitant]

REACTIONS (1)
  - Influenza [None]

NARRATIVE: CASE EVENT DATE: 20150303
